FAERS Safety Report 5593014-X (Version None)
Quarter: 2008Q1

REPORT INFORMATION
  Report Type: 
  Country: None (occurrence: None)
  Receive Date: 20080114
  Receipt Date: 20080107
  Transmission Date: 20080703
  Serious: Yes (Death, Hospitalization)
  Sender: FDA-Public Use
  Company Number: 2008SP000391

PATIENT
  Age: 57 Year
  Sex: Male
  Weight: 89.5 kg

DRUGS (9)
  1. TEMODAR [Suspect]
     Indication: GLIOBLASTOMA MULTIFORME
     Dosage: 100 MG/M2; QD; PO
     Route: 048
     Dates: start: 20071005, end: 20071202
  2. CELEBREX [Concomitant]
  3. DEXAMETHASONE [Concomitant]
  4. PREVACID [Concomitant]
  5. TAGAMET [Concomitant]
  6. CALCITRIOL [Concomitant]
  7. CHLOROQUIN [Concomitant]
  8. ENALAPRIL MALEATE [Concomitant]
  9. VICTRIN [Concomitant]

REACTIONS (5)
  - ACUTE RESPIRATORY DISTRESS SYNDROME [None]
  - DISSEMINATED INTRAVASCULAR COAGULATION [None]
  - PNEUMOCYSTIS JIROVECI PNEUMONIA [None]
  - SEPSIS [None]
  - THROMBOCYTOPENIA [None]
